FAERS Safety Report 5846266-2 (Version None)
Quarter: 2008Q3

REPORT INFORMATION
  Report Type: 
  Country: None (occurrence: None)
  Receive Date: 20080813
  Receipt Date: 20080729
  Transmission Date: 20090109
  Serious: Yes (Death, Congenital Anomaly)
  Sender: FDA-Public Use
  Company Number: 2008AL009210

PATIENT

DRUGS (3)
  1. CARBAMAZEPINE [Suspect]
     Dosage: TRPL
     Route: 064
  2. LAMOTRIGINE [Concomitant]
  3. ACETAZOLAMIDE [Concomitant]

REACTIONS (7)
  - CARDIAC ANEURYSM [None]
  - CARDIAC TAMPONADE [None]
  - FOETAL CARDIAC DISORDER [None]
  - INTRA-UTERINE DEATH [None]
  - INTRACARDIAC THROMBUS [None]
  - MATERNAL DRUGS AFFECTING FOETUS [None]
  - PERICARDIAL HAEMORRHAGE [None]
